FAERS Safety Report 15097302 (Version 1)
Quarter: 2018Q2

REPORT INFORMATION
  Report Type: Spontaneous
  Country: US (occurrence: US)
  Receive Date: 20180610
  Receipt Date: 20180610
  Transmission Date: 20180711
  Serious: Yes (Disabling)
  Sender: FDA-Public Use
  Company Number: None

PATIENT
  Age: 41 Year
  Sex: Female
  Weight: 88.2 kg

DRUGS (3)
  1. CHCLOBENZAPRINE [Concomitant]
  2. IBPROFEN [Concomitant]
  3. METRONIDAZOLE 500MG [Suspect]
     Active Substance: METRONIDAZOLE
     Indication: BACTERIAL VAGINOSIS
     Dosage: ?          QUANTITY:14 DF DOSAGE FORM;?
     Route: 048
     Dates: start: 20180603, end: 20180608

REACTIONS (6)
  - Dizziness [None]
  - Urticaria [None]
  - Pharyngeal oedema [None]
  - Dysarthria [None]
  - Migraine [None]
  - Vision blurred [None]

NARRATIVE: CASE EVENT DATE: 20180608
